FAERS Safety Report 12342736 (Version 1)
Quarter: 2016Q2

REPORT INFORMATION
  Report Type: Report from Study
  Country: US (occurrence: US)
  Receive Date: 20160506
  Receipt Date: 20160506
  Transmission Date: 20160815
  Serious: Yes (Other)
  Sender: FDA-Public Use
  Company Number: US-PFIZER INC-2016242727

PATIENT
  Age: 53 Year
  Sex: Male

DRUGS (1)
  1. ZOLOFT [Suspect]
     Active Substance: SERTRALINE HYDROCHLORIDE
     Dosage: UNK

REACTIONS (4)
  - Aspartate aminotransferase increased [Unknown]
  - Deafness unilateral [Unknown]
  - Multiple sclerosis relapse [Unknown]
  - Meniere^s disease [Unknown]
